FAERS Safety Report 9474834 (Version 2)
Quarter: 2013Q3

REPORT INFORMATION
  Report Type: Report from Study
  Country: BR (occurrence: BR)
  Receive Date: 20130823
  Receipt Date: 20130918
  Transmission Date: 20140515
  Serious: Yes (Hospitalization, Other)
  Sender: FDA-Public Use
  Company Number: PHHY2013BR089813

PATIENT
  Sex: Male
  Weight: 105 kg

DRUGS (4)
  1. DIOVAN AMLO FIX [Suspect]
     Indication: HYPERTENSION
     Dosage: 1 DF(320/10 MG), A DAY
     Route: 048
  2. DIOVAN AMLO FIX [Suspect]
     Dosage: 1 DF(320/10 MG), A DAY
     Route: 048
  3. LOSARTAN [Suspect]
     Indication: HYPERTENSION
     Dosage: 1 DF, QD
     Route: 048
     Dates: start: 201303, end: 201304
  4. HYDRALAZINE [Suspect]
     Indication: POLYURIA
     Dosage: 25 MG, QD

REACTIONS (3)
  - Cerebrovascular accident [Recovered/Resolved]
  - Dysarthria [Recovered/Resolved]
  - Neurologic neglect syndrome [Recovered/Resolved]
